FAERS Safety Report 8965553 (Version 1)
Quarter: 2012Q4

REPORT INFORMATION
  Report Type: Spontaneous
  Country: US (occurrence: None)
  Receive Date: 20121212
  Receipt Date: 20121212
  Transmission Date: 20130627
  Serious: Yes (Hospitalization)
  Sender: FDA-Public Use
  Company Number: None

PATIENT
  Age: 73 Year
  Sex: Male
  Weight: 114.9 kg

DRUGS (1)
  1. LOSARTAN [Suspect]
     Indication: HYPERTENSION
     Dosage: 100-25mg daily po
     Route: 048
     Dates: start: 20121010, end: 20121122

REACTIONS (4)
  - Lip swelling [None]
  - Dysphagia [None]
  - Dyspnoea [None]
  - Drug hypersensitivity [None]
